FAERS Safety Report 9614129 (Version 1)
Quarter: 2013Q4

REPORT INFORMATION
  Report Type: Spontaneous
  Country: US (occurrence: US)
  Receive Date: 20131011
  Receipt Date: 20131011
  Transmission Date: 20140711
  Serious: No
  Sender: FDA-Public Use
  Company Number: US-BIOGENIDEC-2013BI096538

PATIENT
  Sex: Female

DRUGS (3)
  1. TYSABRI [Suspect]
     Indication: MULTIPLE SCLEROSIS
     Route: 042
     Dates: start: 20080408, end: 20090112
  2. TYSABRI [Suspect]
     Indication: MULTIPLE SCLEROSIS
     Route: 042
     Dates: start: 20090209
  3. TYSABRI [Suspect]
     Indication: MULTIPLE SCLEROSIS
     Route: 042

REACTIONS (5)
  - Arthritis [Not Recovered/Not Resolved]
  - Pain [Not Recovered/Not Resolved]
  - Thirst [Not Recovered/Not Resolved]
  - Fatigue [Not Recovered/Not Resolved]
  - Gastric disorder [Not Recovered/Not Resolved]
